FAERS Safety Report 23896240 (Version 1)
Quarter: 2024Q2

REPORT INFORMATION
  Report Type: Spontaneous
  Country: US (occurrence: None)
  Receive Date: 20240523
  Receipt Date: 20240523
  Transmission Date: 20240715
  Serious: Yes (Hospitalization)
  Sender: FDA-Public Use
  Company Number: None

PATIENT
  Age: 52 Year
  Sex: Male

DRUGS (4)
  1. SYMTUZA [Suspect]
     Active Substance: COBICISTAT\DARUNAVIR\EMTRICITABINE\TENOFOVIR ALAFENAMIDE
     Indication: HIV infection
     Dosage: OTHER QUANTITY : 800/150/200/10MG;?FREQUENCY : DAILY;?
     Route: 048
     Dates: start: 202404
  2. EFAVIRENZ [Concomitant]
     Active Substance: EFAVIRENZ
  3. ABACAVIR [Concomitant]
     Active Substance: ABACAVIR
  4. LAMIVUDINE [Concomitant]
     Active Substance: LAMIVUDINE

REACTIONS (1)
  - Viral infection [None]

NARRATIVE: CASE EVENT DATE: 20240501
